FAERS Safety Report 8109154-7 (Version None)
Quarter: 2012Q1

REPORT INFORMATION
  Report Type: 
  Country: None (occurrence: None)
  Receive Date: 20120202
  Receipt Date: 20120104
  Transmission Date: 20120608
  Serious: No
  Sender: FDA-Public Use
  Company Number: US-AMGEN-USASP2012000321

PATIENT
  Age: 42 Year
  Sex: Female

DRUGS (1)
  1. ENBREL [Suspect]
     Indication: RHEUMATOID ARTHRITIS
     Dosage: 50 MG, 2X MONTHLY
     Dates: start: 20110302

REACTIONS (5)
  - FATIGUE [None]
  - EMOTIONAL DISORDER [None]
  - INJECTION SITE PAIN [None]
  - PAIN [None]
  - INJECTION SITE HAEMORRHAGE [None]
